FAERS Safety Report 19811413 (Version 1)
Quarter: 2021Q3

REPORT INFORMATION
  Report Type: Spontaneous
  Country: CA (occurrence: CA)
  Receive Date: 20210909
  Receipt Date: 20210909
  Transmission Date: 20211014
  Serious: Yes (Hospitalization)
  Sender: FDA-Public Use
  Company Number: CA-PFIZER INC-202101127957

PATIENT
  Age: 91 Year
  Sex: Male

DRUGS (5)
  1. MYRBETRIQ [Suspect]
     Active Substance: MIRABEGRON
     Dosage: UNK UNK, 2X/DAY
  2. LABETALOL [Suspect]
     Active Substance: LABETALOL\LABETALOL HYDROCHLORIDE
     Dosage: 100 MG
     Route: 048
  3. LABETALOL [Suspect]
     Active Substance: LABETALOL\LABETALOL HYDROCHLORIDE
     Dosage: 50 MG, 2X/DAY
     Route: 048
  4. TAMSULOSIN [Suspect]
     Active Substance: TAMSULOSIN
     Dosage: UNK
  5. AMLODIPINE BESILATE [Suspect]
     Active Substance: AMLODIPINE BESYLATE
     Dosage: UNK
     Route: 048

REACTIONS (3)
  - Hypotension [Unknown]
  - Orthostatic hypotension [Unknown]
  - Blood creatinine increased [Unknown]
